FAERS Safety Report 5752922-7 (Version None)
Quarter: 2008Q2

REPORT INFORMATION
  Report Type: 
  Country: None (occurrence: None)
  Receive Date: 20080529
  Receipt Date: 20080522
  Transmission Date: 20081010
  Serious: Yes (Hospitalization)
  Sender: FDA-Public Use
  Company Number: AU-ABBOTT-08P-008-0453010-00

PATIENT
  Sex: Female
  Weight: 65 kg

DRUGS (6)
  1. SEVORANE [Suspect]
     Indication: ANAESTHESIA
     Dates: start: 20070219, end: 20070219
  2. FENTANYL-100 [Suspect]
     Indication: ANAESTHESIA
     Dates: start: 20070219, end: 20070219
  3. ROCURONIUM BROMIDE [Suspect]
     Indication: ANAESTHESIA
     Dates: start: 20070219, end: 20070219
  4. TRAMADOL HCL [Suspect]
     Indication: ANAESTHESIA
     Dates: start: 20070219, end: 20070219
  5. DEXAMETHASONE TAB [Concomitant]
     Indication: ANAESTHESIA
     Dates: start: 20070219, end: 20070219
  6. PROPOFOL [Concomitant]
     Indication: ANAESTHESIA
     Dates: start: 20070218, end: 20070218

REACTIONS (2)
  - ASTHENIA [None]
  - MYOCLONUS [None]
